FAERS Safety Report 19942135 (Version 1)
Quarter: 2021Q4

REPORT INFORMATION
  Report Type: Spontaneous
  Country: ES (occurrence: ES)
  Receive Date: 20211011
  Receipt Date: 20211011
  Transmission Date: 20220304
  Serious: Yes (Death, Other)
  Sender: FDA-Public Use
  Company Number: ES-SUN PHARMACEUTICAL INDUSTRIES LTD-2021R1-301531

PATIENT
  Age: 76 Year
  Sex: Male

DRUGS (1)
  1. IMATINIB. [Suspect]
     Active Substance: IMATINIB MESYLATE
     Indication: COVID-19
     Dosage: 400 MILLIGRAM, QD (400 MILLIGRAM, DAILY)
     Route: 065

REACTIONS (2)
  - Death [Fatal]
  - Off label use [Unknown]
